FAERS Safety Report 6160234-5 (Version None)
Quarter: 2009Q2

REPORT INFORMATION
  Report Type: 
  Country: None (occurrence: None)
  Receive Date: 20090420
  Receipt Date: 20090407
  Transmission Date: 20091009
  Serious: Yes (Hospitalization, Other)
  Sender: FDA-Public Use
  Company Number: B0568927A

PATIENT
  Sex: Female

DRUGS (13)
  1. DEROXAT [Suspect]
     Indication: DEPRESSION
     Route: 048
     Dates: end: 20040101
  2. MEDIATOR [Suspect]
     Dosage: 150MG SEE DOSAGE TEXT
     Route: 048
     Dates: start: 20020101, end: 20050321
  3. GLUCOPHAGE [Suspect]
     Dosage: 1700MG PER DAY
     Route: 048
     Dates: start: 20020101
  4. LASILIX [Suspect]
     Indication: DRUG USE FOR UNKNOWN INDICATION
     Route: 048
  5. DIFFU K [Suspect]
     Indication: DRUG USE FOR UNKNOWN INDICATION
     Route: 065
  6. APROVEL [Suspect]
     Route: 048
     Dates: start: 20020101
  7. PREVISCAN [Suspect]
     Indication: DRUG USE FOR UNKNOWN INDICATION
     Route: 048
  8. DIANTALVIC [Suspect]
     Indication: DRUG USE FOR UNKNOWN INDICATION
     Route: 048
  9. DUPHALAC [Suspect]
     Indication: DRUG USE FOR UNKNOWN INDICATION
     Route: 048
  10. XANAX [Suspect]
     Indication: DRUG USE FOR UNKNOWN INDICATION
     Route: 048
  11. IMOVANE [Suspect]
     Indication: DRUG USE FOR UNKNOWN INDICATION
     Route: 048
  12. ELISOR [Suspect]
     Indication: DRUG USE FOR UNKNOWN INDICATION
     Route: 048
  13. LIPANTHYL [Concomitant]
     Route: 065

REACTIONS (7)
  - AORTIC VALVE INCOMPETENCE [None]
  - ASTHENIA [None]
  - DYSPNOEA EXERTIONAL [None]
  - MITRAL VALVE INCOMPETENCE [None]
  - PULMONARY ARTERIAL HYPERTENSION [None]
  - TRICUSPID VALVE DISEASE [None]
  - WEIGHT DECREASED [None]
